FAERS Safety Report 12388744 (Version 1)
Quarter: 2016Q2

REPORT INFORMATION
  Report Type: Spontaneous
  Country: ES (occurrence: ES)
  Receive Date: 20160520
  Receipt Date: 20160520
  Transmission Date: 20160815
  Serious: Yes (Death)
  Sender: FDA-Public Use
  Company Number: ES-SA-2016SA097085

PATIENT
  Age: 81 Year
  Sex: Male

DRUGS (1)
  1. BCG FOR IMMUNOTHERAPY [Suspect]
     Active Substance: BACILLUS CALMETTE-GUERIN ANTIGEN, UNSPECIFIED SUBSTRAIN
     Indication: BLADDER CANCER
     Route: 043

REACTIONS (5)
  - Interstitial lung disease [Fatal]
  - Leukopenia [Fatal]
  - Septic shock [Fatal]
  - Thrombocytopenia [Fatal]
  - Biopsy lymph gland abnormal [Fatal]
